FAERS Safety Report 9654345 (Version 3)
Quarter: 2013Q4

REPORT INFORMATION
  Report Type: Spontaneous
  Country: US (occurrence: None)
  Receive Date: 20131015
  Receipt Date: 20131108
  Transmission Date: 20140711
  Serious: Yes (Other)
  Sender: FDA-Public Use
  Company Number: 2013038377

PATIENT
  Age: 45 Year
  Sex: Male

DRUGS (7)
  1. ZEMAIRA [Suspect]
     Indication: ALPHA-1 ANTI-TRYPSIN DEFICIENCY
     Dosage: INTRAVENOUS (NOT OTHERWISE SPECIFIED)?
     Route: 042
     Dates: start: 20131006, end: 20131006
  2. KLONOPIN (CLONAZEPAM) (TABLETS) [Concomitant]
  3. XANAX (ALPRAZOLAM) [Concomitant]
  4. SYNTHROID (LEVOTHYROXINE SODIUM) [Concomitant]
  5. TORSEMIDERON (TORASEMIDE) [Concomitant]
  6. PREVACID (LANSOPRAZOLE) [Concomitant]
  7. METFORMIN (METFORMIN) [Concomitant]

REACTIONS (3)
  - Vomiting [None]
  - Faeces discoloured [None]
  - Pneumonia [None]
